FAERS Safety Report 9657213 (Version 6)
Quarter: 2014Q2

REPORT INFORMATION
  Report Type: Spontaneous
  Country: US (occurrence: US)
  Receive Date: 20131030
  Receipt Date: 20140416
  Transmission Date: 20141212
  Serious: No
  Sender: FDA-Public Use
  Company Number: US-PFIZER INC-2013310117

PATIENT
  Age: 67 Year
  Sex: Female
  Weight: 72.1 kg

DRUGS (12)
  1. LYRICA [Suspect]
     Indication: SPINAL PAIN
     Dosage: 100 MG, 1X/DAY, 1 CAPSULE DAILY IN THE AM
     Dates: start: 20120511
  2. LYRICA [Suspect]
     Indication: INTERVERTEBRAL DISC DEGENERATION
     Dosage: 150 MG, 1X/DAY, 1 CAPSULE DAILY IN THE AM
     Dates: start: 20130115
  3. LYRICA [Suspect]
     Indication: SCIATICA
     Dosage: UNK
  4. LOSARTAN POTASSIUM [Concomitant]
     Indication: ESSENTIAL HYPERTENSION
     Dosage: 100 MG, DAILY
     Route: 048
     Dates: start: 20110513
  5. ALLOPURINOL [Concomitant]
     Indication: GOUT
     Dosage: 100 MG, DAILY
     Route: 048
     Dates: start: 20110119
  6. CYMBALTA [Concomitant]
     Indication: DEPRESSION
     Dosage: 30 MG, 1X/DAY, 1 CAPSULE AD THE BEDTIME
     Route: 048
     Dates: start: 20120904
  7. METFORMIN HCL ER [Concomitant]
     Indication: DIABETES MELLITUS
     Dosage: 500 MG, DAILY, 1 TABLET WITH THE EVENING MEAL
     Route: 048
     Dates: start: 20130409
  8. FAMOTIDINE [Concomitant]
     Indication: GASTROOESOPHAGEAL REFLUX DISEASE
     Dosage: 20 MG, 2X/DAY
     Route: 048
     Dates: start: 20110114
  9. PANTOPRAZOLE SODIUM [Concomitant]
     Indication: GASTROOESOPHAGEAL REFLUX DISEASE
     Dosage: 20 MG, DAILY, 1 TABLET 30 MINUTES BEFORE BREAKFAST
     Route: 048
     Dates: start: 20131230
  10. ASPIRIN [Concomitant]
     Indication: HYPERLIPIDAEMIA
     Dosage: 81 MG, 1X/DAY, 1 TABLET AT BEDTIME
     Route: 048
     Dates: start: 20120509
  11. HYDROCODONE-ACETAMINOPHEN [Concomitant]
     Indication: SCIATICA
     Dosage: UNK,TAKE 1 TABLET EVERY 8 HOURS PRN FOR PAIN
     Route: 048
     Dates: start: 20110412
  12. HYDROCODONE-ACETAMINOPHEN [Concomitant]
     Indication: PAIN

REACTIONS (5)
  - Influenza [Recovering/Resolving]
  - Nasopharyngitis [Recovering/Resolving]
  - Cough [Recovering/Resolving]
  - Pain [Unknown]
  - Upper respiratory tract infection [Unknown]
